FAERS Safety Report 7701679-9 (Version None)
Quarter: 2011Q3

REPORT INFORMATION
  Report Type: 
  Country: None (occurrence: None)
  Receive Date: 20110822
  Receipt Date: 20110818
  Transmission Date: 20111222
  Serious: Yes (Life-Threatening)
  Sender: FDA-Public Use
  Company Number: JP-ASTRAZENECA-2011SE05934

PATIENT
  Age: 39 Year
  Sex: Female
  Weight: 66 kg

DRUGS (7)
  1. ULTIVA [Concomitant]
     Dosage: DOSE UNKNOWN
     Route: 042
  2. NITRAZEPAM [Concomitant]
     Route: 048
  3. ROCURONIUM BROMIDE [Concomitant]
     Dosage: DOSE UNKNOWN
     Route: 042
  4. MIYA BM [Concomitant]
     Route: 048
  5. RIZABEN [Concomitant]
     Route: 048
  6. FAMOTIDINE [Concomitant]
     Route: 048
  7. DIPRIVAN [Suspect]
     Indication: INDUCTION AND MAINTENANCE OF ANAESTHESIA
     Route: 042

REACTIONS (1)
  - ANAPHYLACTIC SHOCK [None]
